FAERS Safety Report 5250620-X (Version None)
Quarter: 2007Q1

REPORT INFORMATION
  Report Type: 
  Country: None (occurrence: None)
  Receive Date: 20070228
  Receipt Date: 20060809
  Transmission Date: 20070707
  Serious: Yes (Hospitalization)
  Sender: FDA-Public Use
  Company Number: US-GLAXOSMITHKLINE-A0608070A

PATIENT
  Age: 42 Year
  Sex: Male

DRUGS (5)
  1. LAMICTAL [Suspect]
     Indication: EPILEPSY
     Dosage: 300MG TWICE PER DAY
     Route: 048
  2. KEPPRA [Concomitant]
  3. ZONEGRAN [Concomitant]
  4. KLONOPIN [Concomitant]
  5. ATIVAN [Concomitant]

REACTIONS (4)
  - DRUG INEFFECTIVE [None]
  - DYSARTHRIA [None]
  - GAIT DISTURBANCE [None]
  - SOMNOLENCE [None]
